FAERS Safety Report 23133696 (Version 1)
Quarter: 2023Q4

REPORT INFORMATION
  Report Type: Spontaneous
  Country: US (occurrence: None)
  Receive Date: 20231031
  Receipt Date: 20231031
  Transmission Date: 20240110
  Serious: No
  Sender: FDA-Public Use
  Company Number: None

PATIENT
  Sex: 0

DRUGS (1)
  1. POLYVINYL ALCOHOL EYE DROPS 1,4 % W/V [Suspect]
     Active Substance: POLYVINYL ALCOHOL
     Indication: Dry eye
     Dosage: OTHER QUANTITY : 1 DROP(S);?FREQUENCY : AS NEEDED;?
     Route: 047
     Dates: start: 20231026, end: 20231027

REACTIONS (3)
  - Eye pain [None]
  - Ocular discomfort [None]
  - Ocular discomfort [None]

NARRATIVE: CASE EVENT DATE: 20231026
